FAERS Safety Report 8394550-3 (Version None)
Quarter: 2012Q2

REPORT INFORMATION
  Report Type: 
  Country: None (occurrence: None)
  Receive Date: 20120530
  Receipt Date: 20120529
  Transmission Date: 20120825
  Serious: Yes (Life-Threatening, Other)
  Sender: FDA-Public Use
  Company Number: PHHY2012HR045614

PATIENT
  Age: 75 Year
  Sex: Female

DRUGS (5)
  1. COAXIL [Suspect]
     Indication: DEMENTIA
     Dosage: 12.5 MG, UNK
     Route: 048
     Dates: start: 20120419, end: 20120419
  2. RAMIPRIL [Concomitant]
     Indication: HYPERTENSIVE HEART DISEASE
     Dosage: 5 MG, QD
     Route: 048
     Dates: start: 20090101
  3. TRILEPTAL [Suspect]
     Indication: EPILEPSY
     Dosage: 600 MG, QD
     Route: 048
     Dates: start: 20120418
  4. FUROSEMIDE [Concomitant]
     Indication: CARDIOMYOPATHY
     Dosage: 20 MG, QD
     Route: 048
     Dates: start: 19990101
  5. NORVASC [Concomitant]
     Indication: HYPERTENSIVE HEART DISEASE
     Dosage: 10 MG, QD
     Route: 048
     Dates: start: 20080101

REACTIONS (8)
  - HALLUCINATIONS, MIXED [None]
  - AGITATION [None]
  - FACIAL PARESIS [None]
  - DISORIENTATION [None]
  - RESTLESSNESS [None]
  - WHITE BLOOD CELL COUNT INCREASED [None]
  - BLOOD GLUCOSE INCREASED [None]
  - ARRHYTHMIA [None]
